FAERS Safety Report 7945301-5 (Version None)
Quarter: 2011Q4

REPORT INFORMATION
  Report Type: 
  Country: None (occurrence: None)
  Receive Date: 20111129
  Receipt Date: 20110107
  Transmission Date: 20120403
  Serious: No
  Sender: FDA-Public Use
  Company Number: US-GLAXOSMITHKLINE-A0904116A

PATIENT
  Age: 52 Year
  Sex: Female

DRUGS (3)
  1. ESTROGEN REPLACEMENT [Concomitant]
  2. WELLBUTRIN XL [Suspect]
     Indication: FIBROMYALGIA
     Route: 048
  3. BUPROPION HYDROCHLORIDE [Suspect]
     Indication: FIBROMYALGIA
     Dosage: 150MG TWICE PER DAY
     Route: 048
     Dates: start: 20020901, end: 20070701

REACTIONS (2)
  - PAIN [None]
  - DRUG INEFFECTIVE [None]
